FAERS Safety Report 20263309 (Version 1)
Quarter: 2021Q4

REPORT INFORMATION
  Report Type: Other
  Country: IT (occurrence: None)
  Receive Date: 20211231
  Receipt Date: 20211231
  Transmission Date: 20220303
  Serious: Yes (Hospitalization, Other)
  Sender: FDA-Public Use
  Company Number: IT-ROCHE-2984801

PATIENT

DRUGS (8)
  1. TOCILIZUMAB [Suspect]
     Active Substance: TOCILIZUMAB
     Indication: COVID-19
     Route: 065
  2. TOCILIZUMAB [Suspect]
     Active Substance: TOCILIZUMAB
     Indication: Immunosuppression
  3. ANAKINRA [Suspect]
     Active Substance: ANAKINRA
     Indication: Immunosuppression
     Route: 065
  4. REPARIXIN [Suspect]
     Active Substance: REPARIXIN
     Indication: Immunosuppression
     Route: 065
  5. MAVRILIMUMAB [Suspect]
     Active Substance: MAVRILIMUMAB
     Indication: Immunosuppression
     Route: 065
  6. SARILUMAB [Suspect]
     Active Substance: SARILUMAB
     Indication: Immunosuppression
     Route: 065
  7. CYCLOPHOSPHAMIDE [Suspect]
     Active Substance: CYCLOPHOSPHAMIDE
     Indication: Immunosuppression
     Route: 065
  8. TACROLIMUS [Suspect]
     Active Substance: TACROLIMUS
     Indication: Immunosuppression
     Route: 065

REACTIONS (5)
  - Off label use [Unknown]
  - Candida infection [Unknown]
  - Systemic candida [Unknown]
  - Endocarditis [Unknown]
  - Endophthalmitis [Unknown]
